FAERS Safety Report 5621427-6 (Version None)
Quarter: 2008Q1

REPORT INFORMATION
  Report Type: 
  Country: None (occurrence: None)
  Receive Date: 20080211
  Receipt Date: 20080109
  Transmission Date: 20080703
  Serious: No
  Sender: FDA-Public Use
  Company Number: US-BAYER-200810764NA

PATIENT
  Age: 62 Year
  Sex: Male

DRUGS (6)
  1. LEVITRA [Suspect]
     Indication: ERECTILE DYSFUNCTION
     Dosage: TOTAL DAILY DOSE: 20 MG  UNIT DOSE: 20 MG
     Route: 048
     Dates: start: 20080108, end: 20080108
  2. LEVITRA [Suspect]
     Dosage: TOTAL DAILY DOSE: 20 MG  UNIT DOSE: 20 MG
     Route: 048
     Dates: start: 20080109, end: 20080109
  3. QUINAPRIL HCL [Concomitant]
  4. INSULIN [Concomitant]
  5. GLYBURIDE [Concomitant]
  6. TYLENOL (CAPLET) [Concomitant]

REACTIONS (1)
  - ERECTILE DYSFUNCTION [None]
